FAERS Safety Report 25943318 (Version 1)
Quarter: 2025Q4

REPORT INFORMATION
  Report Type: Spontaneous
  Country: US (occurrence: None)
  Receive Date: 20251021
  Receipt Date: 20251021
  Transmission Date: 20260119
  Serious: Yes (Hospitalization)
  Sender: FDA-CTU
  Company Number: None

PATIENT
  Sex: Female

DRUGS (4)
  1. PULMOZYME [Suspect]
     Active Substance: DORNASE ALFA
     Indication: Chronic respiratory failure
     Dosage: ? INHALE 2.5 MG INTO THE LUNGS VIA NEBULIZER DAILY
     Route: 055
     Dates: start: 20200619
  2. BETHKIS [Concomitant]
     Active Substance: TOBRAMYCIN
  3. EPIDIOLEX [Concomitant]
     Active Substance: CANNABIDIOL
  4. TOBRAMYCIN SOL 0.3% OP [Concomitant]

REACTIONS (5)
  - Pneumonia [None]
  - Cystic fibrosis [None]
  - Sleep disorder [None]
  - Activities of daily living decreased [None]
  - Social problem [None]
